FAERS Safety Report 11192761 (Version 1)
Quarter: 2015Q2

REPORT INFORMATION
  Report Type: Spontaneous
  Country: US (occurrence: None)
  Receive Date: 20150612
  Receipt Date: 20150612
  Transmission Date: 20150821
  Serious: Yes (Hospitalization)
  Sender: FDA-Public Use
  Company Number: FK201502621

PATIENT
  Age: 77 Year
  Sex: Male

DRUGS (1)
  1. AMIODARONE HCL [Suspect]
     Active Substance: AMIODARONE HYDROCHLORIDE
     Indication: ATRIAL FLUTTER

REACTIONS (7)
  - Off label use [None]
  - Fluid overload [None]
  - Lung infiltration [None]
  - Atrial fibrillation [None]
  - Jugular vein distension [None]
  - Hyperthyroidism [None]
  - Ejection fraction decreased [None]
